FAERS Safety Report 9043825 (Version 1)
Quarter: 2013Q1

REPORT INFORMATION
  Report Type: Spontaneous
  Country: US (occurrence: US)
  Receive Date: 20130129
  Receipt Date: 20130129
  Transmission Date: 20140127
  Serious: No
  Sender: FDA-Public Use
  Company Number: US-ABBOTT-12P-163-0909794-00

PATIENT
  Age: 48 Year
  Sex: 0

DRUGS (2)
  1. HUMIRA 40 MG/0.8 ML PEN [Suspect]
     Indication: CROHN^S DISEASE
     Route: 058
     Dates: start: 2010
  2. ASACOL [Concomitant]
     Indication: CROHN^S DISEASE
     Dates: start: 2010

REACTIONS (1)
  - Nasopharyngitis [Not Recovered/Not Resolved]
